FAERS Safety Report 5499788-0 (Version None)
Quarter: 2007Q4

REPORT INFORMATION
  Report Type: 
  Country: None (occurrence: None)
  Receive Date: 20071026
  Receipt Date: 20071015
  Transmission Date: 20080405
  Serious: Yes (Other)
  Sender: FDA-Public Use
  Company Number: US-PFIZER INC-2007074639

PATIENT
  Sex: Female
  Weight: 52.272 kg

DRUGS (5)
  1. DEPO-MEDROL [Suspect]
     Indication: INFLAMMATION
     Route: 008
     Dates: start: 20070814, end: 20070814
  2. DEPO-MEDROL [Suspect]
     Indication: PAIN
  3. ALTACE [Concomitant]
  4. HYDROCHLOROTHIAZIDE [Concomitant]
  5. ACTIVELLA [Concomitant]

REACTIONS (8)
  - ABDOMINAL DISTENSION [None]
  - ABDOMINAL PAIN UPPER [None]
  - CONSTIPATION [None]
  - HYPERHIDROSIS [None]
  - PYREXIA [None]
  - ULCER [None]
  - URINARY TRACT INFECTION [None]
  - WEIGHT INCREASED [None]
